FAERS Safety Report 9755907 (Version 1)
Quarter: 2013Q4

REPORT INFORMATION
  Report Type: Spontaneous
  Country: NL (occurrence: NL)
  Receive Date: 20131213
  Receipt Date: 20131213
  Transmission Date: 20140711
  Serious: Yes (Other)
  Sender: FDA-Public Use
  Company Number: NL-BRISTOL-MYERS SQUIBB COMPANY-19878321

PATIENT
  Age: 43 Year
  Sex: Female
  Weight: 96 kg

DRUGS (2)
  1. KENACORT-A40 INJ [Suspect]
     Indication: ARTHRALGIA
     Dosage: SUSPENSION 40MG/ML 1ML FLASK
     Dates: start: 20131105
  2. HUMALOG [Concomitant]
     Dosage: INJECTION FLUID 100E/ML 10ML FLASK
     Dates: start: 1978

REACTIONS (3)
  - Hypoglycaemic unconsciousness [Unknown]
  - Hypoglycaemia [Unknown]
  - Hyperglycaemia [Unknown]
